FAERS Safety Report 8139489-3 (Version None)
Quarter: 2012Q1

REPORT INFORMATION
  Report Type: 
  Country: None (occurrence: None)
  Receive Date: 20120215
  Receipt Date: 20120206
  Transmission Date: 20120608
  Serious: Yes (Death, Hospitalization)
  Sender: FDA-Public Use
  Company Number: GW-ABBOTT-12P-071-0889746-00

PATIENT
  Sex: Male
  Weight: 50.5 kg

DRUGS (5)
  1. COTRIM [Concomitant]
     Indication: PROPHYLAXIS
     Route: 048
     Dates: start: 20111128, end: 20111225
  2. FOLIC ACID [Concomitant]
     Indication: PROPHYLAXIS
     Route: 048
     Dates: start: 20111128, end: 20111225
  3. LAMIVUDINE(PEPFAR) [Concomitant]
     Indication: HIV INFECTION
     Route: 048
     Dates: start: 20111128, end: 20111225
  4. KALETRA [Suspect]
     Indication: HIV INFECTION
     Dosage: 200MG/50MG
     Route: 048
     Dates: start: 20111128, end: 20111225
  5. ZIDOVUDINE [Concomitant]
     Indication: HIV INFECTION
     Route: 048
     Dates: start: 20111128, end: 20111225

REACTIONS (3)
  - HEADACHE [None]
  - PYREXIA [None]
  - DEATH [None]
